FAERS Safety Report 8030758-4 (Version None)
Quarter: 2012Q1

REPORT INFORMATION
  Report Type: 
  Country: None (occurrence: None)
  Receive Date: 20120109
  Receipt Date: 20120106
  Transmission Date: 20120608
  Serious: Yes (Hospitalization, Other)
  Sender: FDA-Public Use
  Company Number: PHHY2011AU96533

PATIENT
  Sex: Female

DRUGS (2)
  1. ONBREZ [Suspect]
     Indication: CHRONIC OBSTRUCTIVE PULMONARY DISEASE
     Dosage: 150 UG, QD
     Dates: start: 20110328
  2. ONBREZ [Suspect]
     Dosage: 300 UG, UNK

REACTIONS (3)
  - INTESTINAL OBSTRUCTION [None]
  - CONSTIPATION [None]
  - URINARY TRACT INFECTION [None]
